FAERS Safety Report 5950121-7 (Version None)
Quarter: 2008Q4

REPORT INFORMATION
  Report Type: 
  Country: None (occurrence: None)
  Receive Date: 20081112
  Receipt Date: 20081105
  Transmission Date: 20090506
  Serious: Yes (Hospitalization)
  Sender: FDA-Public Use
  Company Number: US-ABBOTT-08P-163-0485784-00

PATIENT
  Sex: Female
  Weight: 47.67 kg

DRUGS (5)
  1. HUMIRA [Suspect]
     Indication: DRUG USE FOR UNKNOWN INDICATION
     Route: 058
     Dates: start: 20071001, end: 20071207
  2. HUMIRA [Suspect]
     Route: 058
     Dates: start: 20080301
  3. HUMIRA [Suspect]
     Dosage: LOADING DOSE
     Dates: start: 20071001, end: 20071001
  4. MESALAMINE [Concomitant]
     Indication: CROHN'S DISEASE
     Dates: end: 20071201
  5. AZATHIOPRINE [Concomitant]
     Indication: CROHN'S DISEASE
     Dates: end: 20071201

REACTIONS (6)
  - CONSTIPATION [None]
  - HEADACHE [None]
  - HYPERACUSIS [None]
  - PHOTOPHOBIA [None]
  - VOMITING [None]
  - WEIGHT DECREASED [None]
